FAERS Safety Report 22263558 (Version 2)
Quarter: 2023Q2

REPORT INFORMATION
  Report Type: Report from Study
  Country: CA (occurrence: CA)
  Receive Date: 20230428
  Receipt Date: 20230503
  Transmission Date: 20230721
  Serious: Yes (Other)
  Sender: FDA-Public Use
  Company Number: CA-JNJFOC-20230450855

PATIENT
  Age: 25 Year
  Sex: Female
  Weight: 71 kg

DRUGS (6)
  1. REMICADE [Suspect]
     Active Substance: INFLIXIMAB
     Indication: Colitis ulcerative
     Route: 042
     Dates: start: 20230131
  2. REMICADE [Suspect]
     Active Substance: INFLIXIMAB
     Dosage: PATIENT DOSE MODIFIED TO 300 MG EVERY 8 WEEKS ; WEIGHT IS 71 KG - VIAL ROUNDED DOWN RESULTS IN { 5 M
     Route: 042
     Dates: start: 2023
  3. BENADRYL [Concomitant]
     Active Substance: DIPHENHYDRAMINE HYDROCHLORIDE
     Indication: Premedication
     Route: 065
     Dates: start: 20230421
  4. BENADRYL [Concomitant]
     Active Substance: DIPHENHYDRAMINE HYDROCHLORIDE
     Route: 042
  5. HYDROCORTISONE [Concomitant]
     Active Substance: HYDROCORTISONE
     Indication: Premedication
     Route: 065
     Dates: start: 20230421
  6. HYDROCORTISONE [Concomitant]
     Active Substance: HYDROCORTISONE
     Route: 065

REACTIONS (10)
  - Palpitations [Recovered/Resolved]
  - Dyspnoea [Recovered/Resolved]
  - Infusion related reaction [Recovered/Resolved]
  - Defaecation urgency [Recovered/Resolved]
  - Vomiting [Recovered/Resolved]
  - Diarrhoea [Recovered/Resolved]
  - Abdominal pain [Recovered/Resolved]
  - Nausea [Recovered/Resolved]
  - Flushing [Recovered/Resolved]
  - Off label use [Unknown]

NARRATIVE: CASE EVENT DATE: 20230101
